FAERS Safety Report 4982383-7 (Version None)
Quarter: 2006Q2

REPORT INFORMATION
  Report Type: 
  Country: None (occurrence: None)
  Receive Date: 20060424
  Receipt Date: 20060424
  Transmission Date: 20061013
  Serious: Yes (Life-Threatening, Hospitalization)
  Sender: FDA-Public Use
  Company Number: None

PATIENT
  Sex: Female

DRUGS (1)
  1. LYMPHAZURIN [Suspect]
     Indication: DIAGNOSTIC PROCEDURE
     Dates: start: 20060419

REACTIONS (2)
  - HYPOTENSION [None]
  - PROCEDURAL COMPLICATION [None]
